FAERS Safety Report 16407487 (Version 4)
Quarter: 2020Q1

REPORT INFORMATION
  Report Type: Report from Study
  Country: CA (occurrence: CA)
  Receive Date: 20190608
  Receipt Date: 20200316
  Transmission Date: 20200409
  Serious: Yes (Hospitalization, Other)
  Sender: FDA-Public Use
  Company Number: PHHY2017CA072009

PATIENT
  Age: 66 Year
  Sex: Female

DRUGS (6)
  1. VALSARTAN. [Concomitant]
     Active Substance: VALSARTAN
     Dosage: UNK (320 MG/ 12.5 MG)
     Route: 048
     Dates: start: 2019
  2. SANDOSTATIN [Suspect]
     Active Substance: OCTREOTIDE ACETATE
     Indication: CARCINOID TUMOUR
     Dosage: 50 UG, TID (FOR 2 WEEKS)
     Route: 058
     Dates: start: 20170327, end: 20170411
  3. SANDOSTATIN [Suspect]
     Active Substance: OCTREOTIDE ACETATE
     Indication: NEUROENDOCRINE TUMOUR
  4. VALSARTAN. [Concomitant]
     Active Substance: VALSARTAN
     Indication: HYPERTENSION
     Dosage: UNK (160MG /12.5MG)
     Route: 048
     Dates: start: 2019
  5. SANDOSTATIN LAR DEPOT [Suspect]
     Active Substance: OCTREOTIDE ACETATE
     Indication: CARCINOID TUMOUR
     Dosage: 20 MG, QMO (EVERY4 WEEKS)
     Route: 030
     Dates: start: 20170412
  6. SANDOSTATIN LAR DEPOT [Suspect]
     Active Substance: OCTREOTIDE ACETATE
     Indication: NEUROENDOCRINE TUMOUR

REACTIONS (24)
  - Pneumonia [Unknown]
  - Salivary gland pain [Unknown]
  - Hyperhidrosis [Unknown]
  - Chest pain [Unknown]
  - Paraesthesia [Unknown]
  - Hip fracture [Unknown]
  - Sialoadenitis [Unknown]
  - Back pain [Unknown]
  - Musculoskeletal chest pain [Unknown]
  - Gait disturbance [Unknown]
  - Myocardial infarction [Unknown]
  - Cardiac discomfort [Unknown]
  - Heart rate increased [Unknown]
  - Pain in extremity [Unknown]
  - Kidney infection [Unknown]
  - Pain [Unknown]
  - Rib fracture [Unknown]
  - Hot flush [Unknown]
  - Immunodeficiency [Unknown]
  - Biliary colic [Recovered/Resolved]
  - Dyspnoea [Unknown]
  - Depressed mood [Unknown]
  - Fungal infection [Unknown]
  - Blood pressure increased [Unknown]

NARRATIVE: CASE EVENT DATE: 201705
